FAERS Safety Report 14150539 (Version 1)
Quarter: 2017Q4

REPORT INFORMATION
  Report Type: Report from Study
  Country: US (occurrence: US)
  Receive Date: 20171101
  Receipt Date: 20171101
  Transmission Date: 20180321
  Serious: Yes (Death)
  Sender: FDA-Public Use
  Company Number: US-EXELIXIS-CABO-17011060

PATIENT
  Sex: Male

DRUGS (21)
  1. ALPRAZOLAM. [Concomitant]
     Active Substance: ALPRAZOLAM
  2. ASPIRIN. [Concomitant]
     Active Substance: ASPIRIN
  3. CHOLECALCIFEROL [Concomitant]
     Active Substance: CHOLECALCIFEROL
  4. FERROUS SULFATE. [Concomitant]
     Active Substance: FERROUS SULFATE
  5. ATORVASTIN [Concomitant]
     Active Substance: ATORVASTATIN
  6. FUROSEMIDE. [Concomitant]
     Active Substance: FUROSEMIDE
  7. INSULIN GLARGINE [Concomitant]
     Active Substance: INSULIN GLARGINE
  8. DOCUSATE SODIUM. [Concomitant]
     Active Substance: DOCUSATE SODIUM
  9. OXYCODONE [Concomitant]
     Active Substance: OXYCODONE
  10. WARFARIN [Concomitant]
     Active Substance: WARFARIN
  11. AMLODIPINE [Concomitant]
     Active Substance: AMLODIPINE BESYLATE
  12. ATENOLOL. [Concomitant]
     Active Substance: ATENOLOL
  13. GABAPENTIN. [Concomitant]
     Active Substance: GABAPENTIN
  14. MELATONIN [Concomitant]
     Active Substance: MELATONIN
  15. MULTIVITAMIN [Concomitant]
     Active Substance: VITAMINS
  16. PANTOPRAZOLE [Concomitant]
     Active Substance: PANTOPRAZOLE
  17. CABOMETYX [Suspect]
     Active Substance: CABOZANTINIB S-MALATE
     Indication: RENAL CANCER
     Dosage: 40 MG, QD
     Route: 048
     Dates: start: 20170130, end: 201703
  18. INSULIN LISPRO [Concomitant]
     Active Substance: INSULIN LISPRO
  19. TANCET [Concomitant]
  20. ONDANSETRON HCL [Concomitant]
     Active Substance: ONDANSETRON HYDROCHLORIDE
  21. PROCHLORPERAZINE. [Concomitant]
     Active Substance: PROCHLORPERAZINE

REACTIONS (1)
  - Death [Fatal]
